FAERS Safety Report 13317718 (Version 1)
Quarter: 2017Q1

REPORT INFORMATION
  Report Type: Spontaneous
  Country: US (occurrence: US)
  Receive Date: 20170310
  Receipt Date: 20170310
  Transmission Date: 20170428
  Serious: Yes (Other)
  Sender: FDA-Public Use
  Company Number: US-PERRIGO-17US001914

PATIENT
  Age: 38 Year
  Sex: Female

DRUGS (1)
  1. TUSSIN [Suspect]
     Active Substance: GUAIFENESIN
     Indication: COUGH
     Dosage: 10 ML, SINGLE
     Route: 048
     Dates: start: 20170220, end: 20170220

REACTIONS (6)
  - Confusional state [Not Recovered/Not Resolved]
  - Myocardial infarction [Unknown]
  - Depression [Not Recovered/Not Resolved]
  - Memory impairment [Not Recovered/Not Resolved]
  - Feeling abnormal [Not Recovered/Not Resolved]
  - Feeling drunk [Not Recovered/Not Resolved]

NARRATIVE: CASE EVENT DATE: 20170220
